FAERS Safety Report 6689381-6 (Version None)
Quarter: 2010Q2

REPORT INFORMATION
  Report Type: 
  Country: None (occurrence: None)
  Receive Date: 20100419
  Receipt Date: 20100419
  Transmission Date: 20101027
  Serious: Yes (Hospitalization, Disabling)
  Sender: FDA-Public Use
  Company Number: None

PATIENT
  Age: 59 Year
  Sex: Male
  Weight: 97.5234 kg

DRUGS (3)
  1. CIPROFLOXACIN [Suspect]
     Indication: INFECTION PROPHYLAXIS
     Dosage: 500 MG TWICE DAILY PO
     Route: 048
     Dates: start: 20091118, end: 20091125
  2. CIPROFLOXACIN [Suspect]
     Indication: INFECTION PROPHYLAXIS
     Dosage: 500 MG TWICE DAILY PO
     Route: 048
     Dates: start: 20091231, end: 20100108
  3. CIPROFLOXACIN [Suspect]
     Indication: POST PROCEDURAL COMPLICATION
     Dosage: 500 MG TWICE DAILY PO
     Route: 048
     Dates: start: 20091231, end: 20100108

REACTIONS (8)
  - ANXIETY [None]
  - DEVICE OCCLUSION [None]
  - HAEMORRHAGE URINARY TRACT [None]
  - MUSCLE SPASMS [None]
  - PAIN [None]
  - SCAR [None]
  - URETHRAL STENOSIS [None]
  - URINARY RETENTION [None]
